FAERS Safety Report 18922933 (Version 1)
Quarter: 2021Q1

REPORT INFORMATION
  Report Type: Spontaneous
  Country: US (occurrence: US)
  Receive Date: 20210218
  Receipt Date: 20210218
  Transmission Date: 20210420
  Serious: No
  Sender: FDA-Public Use
  Company Number: None

PATIENT
  Age: 77 Year
  Sex: Female
  Weight: 72 kg

DRUGS (1)
  1. TIZANIDINE. [Suspect]
     Active Substance: TIZANIDINE
     Indication: TRIGEMINAL NEURALGIA
     Dosage: ?          QUANTITY:30 TABLET(S);?
     Route: 048
     Dates: start: 20210217

REACTIONS (3)
  - Hallucinations, mixed [None]
  - Frustration tolerance decreased [None]
  - Memory impairment [None]

NARRATIVE: CASE EVENT DATE: 20210217
